FAERS Safety Report 17984257 (Version 2)
Quarter: 2020Q3

REPORT INFORMATION
  Report Type: Not Available
  Country: US (occurrence: US)
  Receive Date: 20200706
  Receipt Date: 20200814
  Transmission Date: 20201103
  Serious: No
  Sender: FDA-Public Use
  Company Number: US-NEUROCRINE BIOSCIENCES INC.-2020NBI02142

PATIENT
  Age: 64 Year
  Sex: Female

DRUGS (26)
  1. CALCITRIOL. [Concomitant]
     Active Substance: CALCITRIOL
  2. ESTRADIOL. [Concomitant]
     Active Substance: ESTRADIOL
  3. PROBIOTIC [Concomitant]
     Active Substance: PROBIOTICS NOS
  4. TIZANIDINE. [Concomitant]
     Active Substance: TIZANIDINE
  5. VITAMIN E [Concomitant]
     Active Substance: .ALPHA.-TOCOPHEROL
  6. INGREZZA [Suspect]
     Active Substance: VALBENAZINE
     Indication: TARDIVE DYSKINESIA
  7. ATORVASTATIN [Concomitant]
     Active Substance: ATORVASTATIN
  8. CLONAZEPAM. [Concomitant]
     Active Substance: CLONAZEPAM
  9. COZAAR [Concomitant]
     Active Substance: LOSARTAN POTASSIUM
  10. LABETALOL [Concomitant]
     Active Substance: LABETALOL\LABETALOL HYDROCHLORIDE
  11. AMLODIPINE [Concomitant]
     Active Substance: AMLODIPINE BESYLATE
  12. VENTOLIN [Concomitant]
     Active Substance: ALBUTEROL SULFATE
  13. ASPIRIN. [Concomitant]
     Active Substance: ASPIRIN
  14. ESCITALOPRAM [Concomitant]
     Active Substance: ESCITALOPRAM OXALATE
  15. HYDROCHLOROTHIAZIDE. [Concomitant]
     Active Substance: HYDROCHLOROTHIAZIDE
  16. MAGNESIUM [Concomitant]
     Active Substance: MAGNESIUM
  17. FENOFIBRATE. [Concomitant]
     Active Substance: FENOFIBRATE
  18. LAMOTRIGINE. [Concomitant]
     Active Substance: LAMOTRIGINE
  19. VITAMIN B3 [Concomitant]
     Active Substance: NIACIN
  20. HYDRALAZINE [Concomitant]
     Active Substance: HYDRALAZINE HYDROCHLORIDE
  21. TAMSULOSIN [Concomitant]
     Active Substance: TAMSULOSIN
  22. HYDROCODONE [Concomitant]
     Active Substance: HYDROCODONE
  23. PROTONIX [Concomitant]
     Active Substance: PANTOPRAZOLE SODIUM
  24. RANITIDINE. [Concomitant]
     Active Substance: RANITIDINE
  25. SYNTHROID [Concomitant]
     Active Substance: LEVOTHYROXINE SODIUM
  26. CALCIUM [Concomitant]
     Active Substance: CALCIUM

REACTIONS (2)
  - Tardive dyskinesia [Unknown]
  - Stress [Unknown]
